FAERS Safety Report 17564266 (Version 1)
Quarter: 2020Q1

REPORT INFORMATION
  Report Type: Spontaneous
  Country: US (occurrence: US)
  Receive Date: 20200320
  Receipt Date: 20200320
  Transmission Date: 20200409
  Serious: No
  Sender: FDA-Public Use
  Company Number: US-ASTRAZENECA-2020SE39999

PATIENT
  Sex: Female

DRUGS (1)
  1. NEXIUM 24HR [Suspect]
     Active Substance: ESOMEPRAZOLE MAGNESIUM
     Dosage: UNK
     Route: 048

REACTIONS (10)
  - Speech disorder [Unknown]
  - Therapeutic product effect decreased [Unknown]
  - Drug ineffective [Unknown]
  - Gastrooesophageal reflux disease [Unknown]
  - Tongue discomfort [Unknown]
  - Throat irritation [Unknown]
  - Pain [Unknown]
  - Abdominal pain upper [Unknown]
  - Glossitis [Unknown]
  - Swollen tongue [Unknown]
